FAERS Safety Report 24433633 (Version 3)
Quarter: 2025Q1

REPORT INFORMATION
  Report Type: Spontaneous
  Country: CA (occurrence: CA)
  Receive Date: 20241014
  Receipt Date: 20250214
  Transmission Date: 20250408
  Serious: Yes (Other)
  Sender: PFIZER
  Company Number: CA-PFIZER INC-202400235636

PATIENT
  Age: 17 Year
  Sex: Male

DRUGS (6)
  1. ABRILADA [Suspect]
     Active Substance: ADALIMUMAB-AFZB
     Indication: Crohn^s disease
     Route: 058
     Dates: start: 20240621, end: 2024
  2. ABRILADA [Suspect]
     Active Substance: ADALIMUMAB-AFZB
     Route: 058
  3. ABRILADA [Suspect]
     Active Substance: ADALIMUMAB-AFZB
     Route: 058
     Dates: start: 20240802
  4. ABRILADA [Suspect]
     Active Substance: ADALIMUMAB-AFZB
     Dosage: 40 MG, WEEKLY (160MG DOSE1, 80MG DOSE 2) (REINDUCTION)
     Route: 058
     Dates: start: 20240910, end: 2024
  5. ABRILADA [Suspect]
     Active Substance: ADALIMUMAB-AFZB
     Dosage: 40 MG, WEEKLY (160MG DOSE1, 80MG DOSE 2)
     Route: 058
     Dates: start: 202410
  6. AZATHIOPRINE [Concomitant]
     Active Substance: AZATHIOPRINE
     Dates: start: 202402

REACTIONS (10)
  - Crohn^s disease [Recovering/Resolving]
  - Tooth abscess [Unknown]
  - Chills [Recovered/Resolved]
  - Hyperthermia [Recovered/Resolved]
  - Influenza [Recovered/Resolved]
  - Condition aggravated [Not Recovered/Not Resolved]
  - COVID-19 [Unknown]
  - Haemoglobin decreased [Unknown]
  - Off label use [Unknown]
  - Off label use [Unknown]

NARRATIVE: CASE EVENT DATE: 20240101
